FAERS Safety Report 6500786-6 (Version None)
Quarter: 2009Q4

REPORT INFORMATION
  Report Type: 
  Country: None (occurrence: None)
  Receive Date: 20091216
  Receipt Date: 20090224
  Transmission Date: 20100525
  Serious: No
  Sender: FDA-Public Use
  Company Number: A0770167A

PATIENT
  Age: 50 Year
  Sex: Female

DRUGS (2)
  1. COMMIT [Suspect]
  2. NICORETTE [Suspect]

REACTIONS (7)
  - ABDOMINAL DISCOMFORT [None]
  - DEPRESSION [None]
  - HICCUPS [None]
  - INTENTIONAL DRUG MISUSE [None]
  - PAIN IN JAW [None]
  - TEMPOROMANDIBULAR JOINT SYNDROME [None]
  - THERAPEUTIC RESPONSE UNEXPECTED [None]
